FAERS Safety Report 25984464 (Version 1)
Quarter: 2025Q4

REPORT INFORMATION
  Report Type: Spontaneous
  Country: US (occurrence: None)
  Receive Date: 20251031
  Receipt Date: 20251031
  Transmission Date: 20260118
  Serious: Yes (Hospitalization)
  Sender: FDA-CTU
  Company Number: None

PATIENT
  Age: 86 Year
  Sex: Male
  Weight: 70.3 kg

DRUGS (15)
  1. ORGOVYX [Suspect]
     Active Substance: RELUGOLIX
     Indication: Prostate cancer
     Dosage: 120 MG/MG QOD ORAL ?
     Route: 048
     Dates: start: 20241002
  2. ASPIRIN [Concomitant]
     Active Substance: ASPIRIN
  3. ATORVASTATIN [Concomitant]
     Active Substance: ATORVASTATIN
  4. carbidopa-levodopa disintegrating tablet [Concomitant]
  5. CYANOCOBALAMIN [Concomitant]
     Active Substance: CYANOCOBALAMIN
  6. dorzolamide 2% eye drops [Concomitant]
  7. FLUDROCORTISONE [Concomitant]
     Active Substance: FLUDROCORTISONE
  8. LATANOPROST [Concomitant]
     Active Substance: LATANOPROST
  9. LEVOTHYROXINE [Concomitant]
     Active Substance: LEVOTHYROXINE
  10. MECLIZINE [Concomitant]
     Active Substance: MECLIZINE HYDROCHLORIDE
  11. MIDODRINE [Concomitant]
     Active Substance: MIDODRINE
  12. CREON [Concomitant]
     Active Substance: PANCRELIPASE AMYLASE\PANCRELIPASE LIPASE\PANCRELIPASE PROTEASE
  13. POTASSIUM CHLORIDE [Concomitant]
     Active Substance: POTASSIUM CHLORIDE
  14. tolterodine LA [Concomitant]
  15. VIBEGRON [Concomitant]
     Active Substance: VIBEGRON

REACTIONS (7)
  - Seizure [None]
  - Unresponsive to stimuli [None]
  - Incontinence [None]
  - Eye disorder [None]
  - Lethargy [None]
  - Constipation [None]
  - Blood pressure fluctuation [None]

NARRATIVE: CASE EVENT DATE: 20250917
